FAERS Safety Report 15751180 (Version 1)
Quarter: 2018Q4

REPORT INFORMATION
  Report Type: Report from Study
  Country: IE (occurrence: IE)
  Receive Date: 20181221
  Receipt Date: 20181221
  Transmission Date: 20190205
  Serious: Yes (Hospitalization, Other)
  Sender: FDA-Public Use
  Company Number: PHHY2018IE087770

PATIENT
  Age: 62 Year
  Sex: Female

DRUGS (1)
  1. LEE011 [Suspect]
     Active Substance: RIBOCICLIB
     Indication: BREAST CANCER METASTATIC
     Dosage: 600 MG, UNK
     Route: 065
     Dates: start: 20180523

REACTIONS (10)
  - Lymphadenopathy [Unknown]
  - Breast cancer metastatic [Unknown]
  - Metastases to bone [Unknown]
  - Malignant neoplasm progression [Unknown]
  - Blood creatinine increased [Recovering/Resolving]
  - Neutrophil count decreased [Unknown]
  - Fatigue [Unknown]
  - Ureteric obstruction [Recovered/Resolved]
  - Alopecia [Recovering/Resolving]
  - Metastases to lymph nodes [Unknown]

NARRATIVE: CASE EVENT DATE: 20181129
